FAERS Safety Report 13609693 (Version 1)
Quarter: 2017Q2

REPORT INFORMATION
  Report Type: Spontaneous
  Country: IT (occurrence: IT)
  Receive Date: 20170602
  Receipt Date: 20170602
  Transmission Date: 20170830
  Serious: Yes (Hospitalization, Other)
  Sender: FDA-Public Use
  Company Number: IT-PRINSTON PHARMACEUTICAL INC.-2017PRN00232

PATIENT
  Age: 1 Month
  Sex: Female

DRUGS (1)
  1. PAROXETINE. [Suspect]
     Active Substance: PAROXETINE
     Dosage: 20 MG, ONCE
     Route: 065

REACTIONS (5)
  - Unresponsive to stimuli [Recovering/Resolving]
  - Accidental overdose [Recovering/Resolving]
  - Toxicity to various agents [Recovering/Resolving]
  - Generalised tonic-clonic seizure [Recovered/Resolved]
  - Wrong drug administered [Recovered/Resolved]
